FAERS Safety Report 18792372 (Version 4)
Quarter: 2023Q4

REPORT INFORMATION
  Report Type: Spontaneous
  Country: FR (occurrence: FR)
  Receive Date: 20210127
  Receipt Date: 20231212
  Transmission Date: 20240110
  Serious: Yes (Hospitalization, Other)
  Sender: FDA-Public Use
  Company Number: FR-BRISTOL-MYERS SQUIBB COMPANY-BMS-2021-006277

PATIENT
  Age: 71 Year
  Sex: Female

DRUGS (13)
  1. APIXABAN [Suspect]
     Active Substance: APIXABAN
     Indication: Atrial fibrillation
     Route: 048
  2. APIXABAN [Suspect]
     Active Substance: APIXABAN
     Dosage: 2 DOSAGE FORM PER DAY
     Route: 048
  3. URAPIDIL [Suspect]
     Active Substance: URAPIDIL
     Indication: Essential hypertension
     Dosage: 60 MILLIGRAM PER DAY
     Route: 048
  4. VALPROMIDE [Suspect]
     Active Substance: VALPROMIDE
     Indication: Product used for unknown indication
     Dosage: 2 DOSAGE FORM PER DAY
     Route: 048
  5. VALPROMIDE [Suspect]
     Active Substance: VALPROMIDE
     Dosage: 600 MG, QD
     Route: 048
  6. IRBESARTAN [Suspect]
     Active Substance: IRBESARTAN
     Indication: Essential hypertension
     Dosage: 75 MILLIGRAM PER DAY
     Route: 048
     Dates: end: 202012
  7. LEVOTHYROXINE [Suspect]
     Active Substance: LEVOTHYROXINE
     Indication: Hypothyroidism
     Dosage: 1 DOSAGE FORM PER DAY
     Route: 048
  8. LANSOPRAZOLE [Suspect]
     Active Substance: LANSOPRAZOLE
     Indication: Product used for unknown indication
     Dosage: 15 MILLIGRAM PER DAY
     Route: 048
     Dates: end: 202012
  9. BISOPROLOL FUMARATE [Suspect]
     Active Substance: BISOPROLOL FUMARATE
     Indication: Essential hypertension
     Dosage: 2.5 MILLIGRAM, PER DAY
     Route: 048
  10. LETROZOLE [Suspect]
     Active Substance: LETROZOLE
     Indication: Breast cancer
     Dosage: 2.5 MILLIGRAM PER DAY
     Route: 048
     Dates: start: 202007
  11. FUROSEMIDE [Suspect]
     Active Substance: FUROSEMIDE
     Indication: Essential hypertension
     Dosage: 500 MILLIGRAM PER DAY
     Route: 048
  12. CORDARONE [Suspect]
     Active Substance: AMIODARONE HYDROCHLORIDE
     Indication: Atrial fibrillation
     Dosage: DOSE DESCRIPTION : 200 MG, QD
     Route: 048
  13. LEVOTHYROXINE SODIUM [Suspect]
     Active Substance: LEVOTHYROXINE SODIUM
     Indication: Hypothyroidism
     Dosage: 25 MICROGRAM, QD
     Route: 048

REACTIONS (2)
  - Delusion [Recovered/Resolved]
  - Off label use [Unknown]

NARRATIVE: CASE EVENT DATE: 20201201
